FAERS Safety Report 4321960-3 (Version None)
Quarter: 2004Q1

REPORT INFORMATION
  Report Type: 
  Country: None (occurrence: None)
  Receive Date: 20040323
  Receipt Date: 20040315
  Transmission Date: 20041129
  Serious: Yes (Hospitalization)
  Sender: FDA-Public Use
  Company Number: US-ROCHE-361925

PATIENT
  Sex: Male

DRUGS (2)
  1. FUZEON [Suspect]
     Indication: DRUG USE FOR UNKNOWN INDICATION
     Route: 065
     Dates: start: 20040120, end: 20040121
  2. FUZEON [Suspect]
     Route: 065
     Dates: start: 20040122

REACTIONS (4)
  - BACTERIA BLOOD IDENTIFIED [None]
  - BLOOD PRESSURE ABNORMAL [None]
  - PYREXIA [None]
  - RESTLESSNESS [None]
